FAERS Safety Report 4899358-9 (Version None)
Quarter: 2006Q1

REPORT INFORMATION
  Report Type: 
  Country: None (occurrence: None)
  Receive Date: 20060202
  Receipt Date: 20060104
  Transmission Date: 20060701
  Serious: Yes (Hospitalization)
  Sender: FDA-Public Use
  Company Number: CA-AMGEN-US163569

PATIENT
  Sex: Male
  Weight: 54 kg

DRUGS (11)
  1. ARANESP [Suspect]
     Indication: DIALYSIS
     Dates: start: 20030909
  2. IMODIUM [Concomitant]
  3. FOSAMAX [Concomitant]
  4. SLOW-K [Concomitant]
  5. CELLCEPT [Concomitant]
  6. TACROLIMUS [Concomitant]
  7. SEPTRA [Concomitant]
  8. CALCIUM CARBONATE [Concomitant]
  9. LOSEC [Concomitant]
  10. ROCALTROL [Concomitant]
  11. FLOMAX [Concomitant]

REACTIONS (5)
  - BIOPSY COLON ABNORMAL [None]
  - DIARRHOEA [None]
  - FEMUR FRACTURE [None]
  - GASTROINTESTINAL HAEMORRHAGE [None]
  - THERAPEUTIC RESPONSE DECREASED [None]
